FAERS Safety Report 6190567-8 (Version None)
Quarter: 2009Q2

REPORT INFORMATION
  Report Type: 
  Country: None (occurrence: None)
  Receive Date: 20090514
  Receipt Date: 20090507
  Transmission Date: 20091009
  Serious: Yes (Death, Other)
  Sender: FDA-Public Use
  Company Number: US-CELGENEUS-163-50794-09050699

PATIENT

DRUGS (2)
  1. VIDAZA [Suspect]
     Indication: MYELODYSPLASTIC SYNDROME
     Route: 058
  2. ROMIPLOSTIN [Suspect]
     Indication: THROMBOCYTOPENIA
     Dosage: 500MCG - 750MCG WEEKLY
     Route: 058

REACTIONS (9)
  - ARTHRALGIA [None]
  - EPISTAXIS [None]
  - HAEMORRHAGE [None]
  - HYPERSENSITIVITY [None]
  - MYELODYSPLASTIC SYNDROME TRANSFORMATION [None]
  - PNEUMONIA FUNGAL [None]
  - PULMONARY HAEMORRHAGE [None]
  - RASH [None]
  - THROMBOCYTOPENIA [None]
